FAERS Safety Report 13718816 (Version 2)
Quarter: 2017Q3

REPORT INFORMATION
  Report Type: Spontaneous
  Country: JP (occurrence: JP)
  Receive Date: 20170705
  Receipt Date: 20170710
  Transmission Date: 20171127
  Serious: Yes (Death)
  Sender: FDA-Public Use
  Company Number: JP-JNJFOC-20170519786

PATIENT
  Age: 86 Year
  Sex: Male
  Weight: 51.6 kg

DRUGS (5)
  1. NITOROL [Concomitant]
     Active Substance: ISOSORBIDE DINITRATE
     Route: 048
  2. AMARYL [Concomitant]
     Active Substance: GLIMEPIRIDE
     Route: 048
  3. FUROSEMIDE. [Concomitant]
     Active Substance: FUROSEMIDE
     Route: 048
  4. LIOVEL [Concomitant]
     Active Substance: ALOGLIPTIN BENZOATE\PIOGLITAZONE HYDROCHLORIDE
     Route: 048
  5. XARELTO [Suspect]
     Active Substance: RIVAROXABAN
     Indication: ATRIAL FIBRILLATION
     Route: 048
     Dates: start: 201501

REACTIONS (5)
  - Subdural haematoma [Fatal]
  - Cerebral ventricular rupture [Fatal]
  - Subarachnoid haemorrhage [Fatal]
  - Cerebellar haemorrhage [Fatal]
  - Hydrocephalus [Fatal]

NARRATIVE: CASE EVENT DATE: 20170501
